FAERS Safety Report 15265043 (Version 1)
Quarter: 2018Q3

REPORT INFORMATION
  Report Type: Report from Study
  Country: DE (occurrence: DE)
  Receive Date: 20180810
  Receipt Date: 20180810
  Transmission Date: 20181010
  Serious: Yes (Death, Hospitalization)
  Sender: FDA-Public Use
  Company Number: DE-TEVA-2018-DE-937677

PATIENT
  Sex: Male
  Weight: 69 kg

DRUGS (42)
  1. 5?FLUOROURACIL [Concomitant]
     Active Substance: FLUOROURACIL
     Indication: COLORECTAL CANCER METASTATIC
     Route: 065
     Dates: start: 20141118, end: 20141202
  2. AVASTIN [Suspect]
     Active Substance: BEVACIZUMAB
     Indication: COLORECTAL CANCER METASTATIC
     Route: 042
     Dates: start: 20140218
  3. AVASTIN [Suspect]
     Active Substance: BEVACIZUMAB
     Route: 042
     Dates: start: 20141007
  4. PASPERTIN (METOCLOPRAMIDE HYDROCHLORIDE) [Concomitant]
     Dosage: 60 GTT DAILY;
     Route: 048
     Dates: start: 20140121
  5. GRANISETRON [Concomitant]
     Active Substance: GRANISETRON
     Dosage: 1 MILLIGRAM DAILY;
     Route: 048
     Dates: start: 20140121
  6. OXALIPLATIN. [Suspect]
     Active Substance: OXALIPLATIN
     Route: 042
     Dates: start: 20140304, end: 20140304
  7. XELODA [Suspect]
     Active Substance: CAPECITABINE
     Route: 048
     Dates: start: 20140325, end: 20140407
  8. DEXAMETHASON [Concomitant]
     Active Substance: DEXAMETHASONE
     Indication: PROPHYLAXIS
     Dosage: 12 MILLIGRAM DAILY; ON DAY WHEN CHEMOTHERAPY WAS APPLICATED
     Route: 048
     Dates: start: 20140324
  9. LOPERAMID [Concomitant]
     Active Substance: LOPERAMIDE
     Indication: PROPHYLAXIS
     Dosage: FREQUENCY AS REQUIRED
     Route: 048
     Dates: start: 20140714
  10. ACC ACUTE [Concomitant]
     Indication: RHINITIS
     Route: 065
  11. MAGNESIUM?OPTOPAN [Concomitant]
     Active Substance: MAGNESIUM OXIDE
     Indication: PROPHYLAXIS
     Dosage: 1 DOSAGE FORMS DAILY;
     Route: 048
     Dates: start: 20140304, end: 20140304
  12. OTRIVEN [Concomitant]
     Active Substance: XYLOMETAZOLINE HYDROCHLORIDE
     Indication: SINUSITIS
     Dosage: 3 DOSAGE FORMS DAILY;
     Route: 065
     Dates: start: 20140902, end: 20140908
  13. OXALIPLATIN. [Suspect]
     Active Substance: OXALIPLATIN
     Route: 042
     Dates: start: 20140415, end: 20140415
  14. OXALIPLATIN. [Suspect]
     Active Substance: OXALIPLATIN
     Route: 042
     Dates: start: 20140211, end: 20140211
  15. SPIRONOLACTON [Concomitant]
     Active Substance: SPIRONOLACTONE
     Indication: ASCITES
     Dosage: 100 MILLIGRAM DAILY;
     Route: 048
     Dates: start: 20150831
  16. OXALIPLATIN. [Suspect]
     Active Substance: OXALIPLATIN
     Indication: COLORECTAL CANCER METASTATIC
     Route: 042
     Dates: start: 20140603, end: 20140603
  17. OXALIPLATIN. [Suspect]
     Active Substance: OXALIPLATIN
     Route: 042
     Dates: start: 20140121, end: 20140121
  18. XELODA [Suspect]
     Active Substance: CAPECITABINE
     Indication: COLORECTAL CANCER METASTATIC
     Route: 048
     Dates: start: 20140415, end: 20140428
  19. XELODA [Suspect]
     Active Substance: CAPECITABINE
     Route: 048
     Dates: start: 20140304, end: 20140317
  20. XELODA [Suspect]
     Active Substance: CAPECITABINE
     Route: 048
     Dates: start: 20140121, end: 20140203
  21. TILIDIN [Concomitant]
     Active Substance: NALOXONE HYDROCHLORIDE\TILIDINE HYDROCHLORIDE
     Indication: PAIN PROPHYLAXIS
     Dosage: 50/4MG
     Route: 065
     Dates: start: 20150831
  22. OTRIVEN [Concomitant]
     Active Substance: XYLOMETAZOLINE HYDROCHLORIDE
     Indication: RHINITIS
     Route: 065
  23. ATACAND [Concomitant]
     Active Substance: CANDESARTAN CILEXETIL
     Indication: HYPERTENSION
     Dosage: 8 MILLIGRAM DAILY; 1?0?0
     Route: 048
     Dates: start: 20061221
  24. AVASTIN [Suspect]
     Active Substance: BEVACIZUMAB
     Route: 042
     Dates: start: 20140325
  25. IRINOTECAN [Concomitant]
     Active Substance: IRINOTECAN
     Indication: COLORECTAL CANCER
     Route: 042
     Dates: start: 20140722, end: 20140722
  26. OPIUM TINCTURE [Concomitant]
     Active Substance: MORPHINE
     Indication: PROPHYLAXIS
     Route: 048
     Dates: start: 20140921
  27. OXALIPLATIN. [Suspect]
     Active Substance: OXALIPLATIN
     Route: 042
     Dates: start: 20140325, end: 20140325
  28. XELODA [Suspect]
     Active Substance: CAPECITABINE
     Route: 048
     Dates: end: 20141028
  29. IRINOTECAN [Concomitant]
     Active Substance: IRINOTECAN
     Route: 042
     Dates: start: 20140826, end: 20140826
  30. ASPIRIN. [Concomitant]
     Active Substance: ASPIRIN
     Indication: HYPERTENSION
     Dosage: 100 MILLIGRAM DAILY;
     Route: 048
     Dates: start: 20061221
  31. TORASEMID [Concomitant]
     Active Substance: TORSEMIDE
     Indication: ASCITES
     Dosage: 5 MILLIGRAM DAILY;
     Route: 048
     Dates: start: 20141110
  32. GLANDOMED [Concomitant]
     Indication: PROPHYLAXIS
     Dosage: 1 DOSAGE FORMS DAILY; MOUTH RINSING SOLUTION
     Route: 048
     Dates: start: 20140304, end: 20140304
  33. MACROGOL [Concomitant]
     Active Substance: POLYETHYLENE GLYCOLS
     Indication: CONSTIPATION PROPHYLAXIS
     Dosage: 1 DOSAGE FORMS DAILY;
     Route: 048
     Dates: start: 20150831
  34. ACC ACUTE [Concomitant]
     Indication: SINUSITIS
     Route: 048
     Dates: start: 20140902, end: 20140908
  35. XELODA [Suspect]
     Active Substance: CAPECITABINE
     Route: 048
     Dates: start: 20140211, end: 20140224
  36. FORTECORTIN [Concomitant]
     Active Substance: DEXAMETHASONE
     Dosage: 16 MILLIGRAM DAILY; 1?0?1
     Route: 048
     Dates: start: 20140121
  37. ATROPIN [Concomitant]
     Active Substance: ATROPINE
     Indication: PROPHYLAXIS
     Route: 042
     Dates: start: 20140722
  38. OXALIPLATIN. [Suspect]
     Active Substance: OXALIPLATIN
     Route: 042
     Dates: start: 20140513, end: 20140513
  39. XELODA [Suspect]
     Active Substance: CAPECITABINE
     Dosage: 625 MG/M2
     Route: 048
     Dates: start: 20140722
  40. IRINOTECAN [Concomitant]
     Active Substance: IRINOTECAN
     Route: 042
     Dates: start: 20140805, end: 20140805
  41. FOLINIC ACID [Concomitant]
     Active Substance: LEUCOVORIN
     Indication: COLORECTAL CANCER METASTATIC
     Route: 043
     Dates: start: 20140218, end: 20141202
  42. TORASEMID [Concomitant]
     Active Substance: TORSEMIDE
     Dosage: 10 MILLIGRAM DAILY;
     Route: 048

REACTIONS (4)
  - Gastroenteritis norovirus [Fatal]
  - General physical health deterioration [Fatal]
  - Alopecia [Fatal]
  - Hiccups [Fatal]

NARRATIVE: CASE EVENT DATE: 20140327
